FAERS Safety Report 25401600 (Version 1)
Quarter: 2025Q2

REPORT INFORMATION
  Report Type: Spontaneous
  Country: CN (occurrence: CN)
  Receive Date: 20250605
  Receipt Date: 20250605
  Transmission Date: 20250717
  Serious: Yes (Hospitalization, Other)
  Sender: STRIDES
  Company Number: CN-STRIDES ARCOLAB LIMITED-2025SP006792

PATIENT
  Age: 72 Year
  Sex: Female

DRUGS (4)
  1. AMANTADINE [Suspect]
     Active Substance: AMANTADINE
     Indication: Parkinson^s disease
     Route: 065
  2. BENSERAZIDE\LEVODOPA [Suspect]
     Active Substance: BENSERAZIDE\LEVODOPA
     Indication: Parkinson^s disease
     Route: 065
  3. SELEGILINE [Suspect]
     Active Substance: SELEGILINE
     Indication: Parkinson^s disease
     Route: 065
  4. CARBIDOPA\ENTACAPONE\LEVODOPA [Suspect]
     Active Substance: CARBIDOPA\ENTACAPONE\LEVODOPA
     Indication: Parkinson^s disease
     Route: 065

REACTIONS (1)
  - Dyskinesia hyperpyrexia syndrome [Recovered/Resolved]
